FAERS Safety Report 12104875 (Version 1)
Quarter: 2016Q1

REPORT INFORMATION
  Report Type: Spontaneous
  Country: US (occurrence: US)
  Receive Date: 20160223
  Receipt Date: 20160223
  Transmission Date: 20160526
  Serious: Yes (Other)
  Sender: FDA-Public Use
  Company Number: US-PFIZER INC-2016101895

PATIENT
  Sex: Female

DRUGS (6)
  1. CELECOXIB. [Suspect]
     Active Substance: CELECOXIB
     Indication: TENDONITIS
  2. CELECOXIB. [Suspect]
     Active Substance: CELECOXIB
     Indication: ARTHRITIS
     Dosage: 100 MG, 3X/DAY
     Route: 048
     Dates: start: 1998, end: 2002
  3. CELECOXIB. [Suspect]
     Active Substance: CELECOXIB
     Indication: OSTEOPOROSIS
  4. CELECOXIB. [Suspect]
     Active Substance: CELECOXIB
     Indication: BURSITIS
  5. CYCLOBENZAPRINE HCL [Suspect]
     Active Substance: CYCLOBENZAPRINE HYDROCHLORIDE
     Indication: ARTHRITIS
     Dosage: 5 MG, 3X/DAY
     Route: 048
     Dates: start: 1998
  6. CYCLOBENZAPRINE HCL [Suspect]
     Active Substance: CYCLOBENZAPRINE HYDROCHLORIDE
     Indication: OSTEOPOROSIS
     Dosage: 30 MG, 3X/DAY
     Route: 048
     Dates: end: 2002

REACTIONS (2)
  - Pneumonia [Unknown]
  - Drug ineffective [Unknown]
